FAERS Safety Report 7288929-0 (Version None)
Quarter: 2011Q1

REPORT INFORMATION
  Report Type: 
  Country: None (occurrence: None)
  Receive Date: 20110201
  Receipt Date: 20110118
  Transmission Date: 20110831
  Serious: Yes (Other)
  Sender: FDA-Public Use
  Company Number: 2011SP000225

PATIENT
  Age: 61 Year
  Sex: Male
  Weight: 79.8 kg

DRUGS (6)
  1. VARENICLINE TARTRATE [Suspect]
     Indication: SMOKING CESSATION THERAPY
     Dosage: 0.5 MG;QD;ORAL
     Route: 048
     Dates: start: 20110106
  2. SPIRIVA [Suspect]
     Indication: ASTHMA
     Dosage: INHALATION
     Route: 055
  3. ALBUTEROL [Suspect]
     Indication: ASTHMA
     Dosage: INHALATION
     Route: 055
  4. BROVANA [Suspect]
     Indication: ASTHMA
     Dosage: INHALATION
     Route: 055
  5. PROLIXIN /00000602/ [Concomitant]
  6. WELLBUTRIN [Concomitant]

REACTIONS (2)
  - DRUG INTERACTION [None]
  - DYSPNOEA [None]
